FAERS Safety Report 9314286 (Version 1)
Quarter: 2013Q2

REPORT INFORMATION
  Report Type: Spontaneous
  Country: FR (occurrence: FR)
  Receive Date: 20130529
  Receipt Date: 20130529
  Transmission Date: 20140414
  Serious: Yes (Hospitalization)
  Sender: FDA-Public Use
  Company Number: PHHY2013FR052471

PATIENT
  Age: 26 Year
  Sex: Female

DRUGS (5)
  1. CERTICAN [Suspect]
     Indication: LUNG TRANSPLANT
     Dosage: 2 MG, BID
     Dates: start: 201010, end: 20110817
  2. CELLCEPT [Concomitant]
     Dosage: UNK
  3. CELLCEPT [Concomitant]
     Dosage: UNK
     Dates: start: 20110817
  4. ADVAGRAF [Concomitant]
     Dosage: UNK
  5. ADVAGRAF [Concomitant]
     Dosage: UNK
     Dates: start: 20110817

REACTIONS (1)
  - Organising pneumonia [Recovered/Resolved]
